FAERS Safety Report 5016552-7 (Version None)
Quarter: 2006Q2

REPORT INFORMATION
  Report Type: 
  Country: None (occurrence: None)
  Receive Date: 20060602
  Receipt Date: 20060523
  Transmission Date: 20061013
  Serious: Yes (Disabling)
  Sender: FDA-Public Use
  Company Number: PHRM2006FR01676

PATIENT
  Age: 43 Year
  Sex: Male

DRUGS (1)
  1. COTAREG [Suspect]
     Route: 048

REACTIONS (2)
  - PARAESTHESIA [None]
  - SJOGREN'S SYNDROME [None]
